FAERS Safety Report 5327412-6 (Version None)
Quarter: 2007Q2

REPORT INFORMATION
  Report Type: 
  Country: None (occurrence: None)
  Receive Date: 20070226
  Receipt Date: 20070123
  Transmission Date: 20071010
  Serious: Yes (Disabling)
  Sender: FDA-Public Use
  Company Number: WAES 0701USA04082

PATIENT
  Age: 78 Year
  Sex: Male

DRUGS (7)
  1. VYTORIN [Suspect]
     Indication: BLOOD CHOLESTEROL
     Dosage: SEE IMAGE
     Route: 048
     Dates: start: 20060101, end: 20060601
  2. VYTORIN [Suspect]
     Indication: BLOOD CHOLESTEROL
     Dosage: SEE IMAGE
     Route: 048
     Dates: start: 20061001
  3. DIOVAN [Concomitant]
  4. LASIX [Concomitant]
  5. OCUVITE [Concomitant]
  6. PROSCAR [Concomitant]
  7. INSULIN [Concomitant]

REACTIONS (2)
  - MYALGIA [None]
  - WRONG TECHNIQUE IN DRUG USAGE PROCESS [None]
